FAERS Safety Report 4666173-0 (Version None)
Quarter: 2005Q2

REPORT INFORMATION
  Report Type: 
  Country: None (occurrence: None)
  Receive Date: 20050517
  Receipt Date: 20050517
  Transmission Date: 20051028
  Serious: Yes (Disabling, Other)
  Sender: FDA-Public Use
  Company Number: None

PATIENT
  Age: 42 Year
  Sex: Female
  Weight: 104.3273 kg

DRUGS (1)
  1. EFFEXOR  XF   75 MG   WYET [Suspect]
     Indication: DEPRESSION
     Dosage: 1     1    ORAL
     Route: 048
     Dates: start: 20030424, end: 20050514

REACTIONS (6)
  - ABDOMINAL PAIN [None]
  - BODY TEMPERATURE DECREASED [None]
  - DRUG WITHDRAWAL SYNDROME [None]
  - DYSKINESIA [None]
  - FEELING HOT AND COLD [None]
  - HEART RATE INCREASED [None]
